FAERS Safety Report 5116303-1 (Version None)
Quarter: 2006Q3

REPORT INFORMATION
  Report Type: 
  Country: None (occurrence: None)
  Receive Date: 20060927
  Receipt Date: 20060828
  Transmission Date: 20061208
  Serious: Yes (Hospitalization, Other)
  Sender: FDA-Public Use
  Company Number: US-BOEHRINGER INGELHEIM PHARMACEUTICALS, INC.-2006-BP-10106PF

PATIENT
  Sex: Female
  Weight: 76.66 kg

DRUGS (17)
  1. SPIRIVA [Suspect]
     Indication: PULMONARY FIBROSIS
     Route: 055
     Dates: start: 20050101
  2. SPIRIVA [Suspect]
     Indication: OXYGEN SATURATION DECREASED
  3. SPIRIVA [Suspect]
     Indication: DYSPNOEA
  4. CALAN [Suspect]
     Indication: ATRIAL FIBRILLATION
  5. CALAN [Suspect]
     Indication: CARDIAC VALVE DISEASE
  6. VERAPAMIL [Suspect]
     Indication: ATRIAL FIBRILLATION
  7. VERAPAMIL [Suspect]
     Indication: CARDIAC VALVE DISEASE
  8. ARIMIDEX [Concomitant]
  9. AMARYL [Concomitant]
  10. ATACAND [Concomitant]
  11. PRAVACHOL [Concomitant]
  12. SYNTHROID [Concomitant]
  13. BUMEX [Concomitant]
  14. COUMADIN [Concomitant]
  15. KLOR-CON [Concomitant]
  16. ACTONEL [Concomitant]
  17. OXYGEN [Concomitant]

REACTIONS (4)
  - ARRHYTHMIA [None]
  - ATRIAL FIBRILLATION [None]
  - BODY HEIGHT DECREASED [None]
  - VASOCONSTRICTION [None]
